FAERS Safety Report 5758082-0 (Version None)
Quarter: 2008Q2

REPORT INFORMATION
  Report Type: 
  Country: None (occurrence: None)
  Receive Date: 20080602
  Receipt Date: 20080602
  Transmission Date: 20081010
  Serious: Yes (Hospitalization)
  Sender: FDA-Public Use
  Company Number: None

PATIENT
  Age: 34 Year
  Sex: Female
  Weight: 58.9676 kg

DRUGS (1)
  1. REGLAN [Suspect]
     Indication: NAUSEA
     Dosage: ONE TABLET DAILY PO
     Route: 048
     Dates: start: 20060601, end: 20060605

REACTIONS (4)
  - DYSTONIA [None]
  - TARDIVE DYSKINESIA [None]
  - TOURETTE'S DISORDER [None]
  - TREMOR [None]
